FAERS Safety Report 9648174 (Version 1)
Quarter: 2013Q4

REPORT INFORMATION
  Report Type: Spontaneous
  Country: US (occurrence: None)
  Receive Date: 20131024
  Receipt Date: 20131024
  Transmission Date: 20140711
  Serious: Yes (Hospitalization)
  Sender: FDA-Public Use
  Company Number: None

PATIENT
  Age: 73 Year
  Sex: Female
  Weight: 93.9 kg

DRUGS (9)
  1. JANUVIA [Suspect]
     Indication: BLADDER CANCER
     Dosage: 1 TABLET
     Dates: start: 20110709, end: 20130608
  2. AMARYL [Concomitant]
  3. LOSARTAN [Concomitant]
  4. METFORMIN [Concomitant]
  5. SIMVASTATIN [Concomitant]
  6. LEVOTHYROXIN [Concomitant]
  7. LUMIGAN [Concomitant]
  8. ONE A DAY [Concomitant]
  9. VITA CRAVES [Concomitant]

REACTIONS (2)
  - Haemorrhage [None]
  - Muscle spasms [None]
